FAERS Safety Report 7172422-X (Version None)
Quarter: 2010Q4

REPORT INFORMATION
  Report Type: 
  Country: None (occurrence: None)
  Receive Date: 20101217
  Receipt Date: 20100209
  Transmission Date: 20110411
  Serious: Yes (Hospitalization)
  Sender: FDA-Public Use
  Company Number: US-AMGEN-KDL389734

PATIENT

DRUGS (9)
  1. ENBREL [Suspect]
     Indication: RHEUMATOID ARTHRITIS
     Dosage: 50 MG, QWK
     Route: 058
     Dates: start: 20050311
  2. POTASSIUM CHLORIDE [Concomitant]
  3. METOPROLOL [Concomitant]
  4. TOLTERODINE TARTRATE [Concomitant]
  5. LOSARTAN POTASSIUM [Concomitant]
  6. LEVOTHYROXINE SODIUM [Concomitant]
  7. FOLIC ACID [Concomitant]
  8. ERGOCALCIFEROL [Concomitant]
  9. CALCIUM [Concomitant]

REACTIONS (1)
  - PYELONEPHRITIS [None]
